FAERS Safety Report 7739182-2 (Version None)
Quarter: 2011Q3

REPORT INFORMATION
  Report Type: 
  Country: None (occurrence: None)
  Receive Date: 20110909
  Receipt Date: 20110829
  Transmission Date: 20111222
  Serious: Yes (Other)
  Sender: FDA-Public Use
  Company Number: US-JNJFOC-20110901598

PATIENT
  Sex: Male
  Weight: 81.65 kg

DRUGS (7)
  1. METFORMIN [Concomitant]
     Indication: DIABETES MELLITUS
     Route: 048
  2. DURAGESIC-100 [Suspect]
     Indication: NEUROPATHY PERIPHERAL
     Route: 062
     Dates: start: 20010101, end: 20090101
  3. INSULIN [Concomitant]
     Indication: DIABETES MELLITUS
     Route: 058
  4. ACTOS [Concomitant]
     Indication: DIABETES MELLITUS
     Route: 048
  5. DURAGESIC-100 [Suspect]
     Dosage: 100 UG/HR AND 50 UG/HR
     Route: 062
     Dates: start: 20090101
  6. DURAGESIC-100 [Suspect]
     Dosage: 100 UG/HR AND 50 UG/HR
     Route: 062
     Dates: start: 20090101
  7. GLYBURIDE [Concomitant]
     Indication: DIABETES MELLITUS
     Route: 048

REACTIONS (7)
  - COLD SWEAT [None]
  - BLOOD CHOLESTEROL INCREASED [None]
  - SUICIDE ATTEMPT [None]
  - PRODUCT ADHESION ISSUE [None]
  - THERAPEUTIC RESPONSE DECREASED [None]
  - PAIN [None]
  - WRONG TECHNIQUE IN DRUG USAGE PROCESS [None]
